FAERS Safety Report 16610270 (Version 2)
Quarter: 2019Q3

REPORT INFORMATION
  Report Type: Spontaneous
  Country: CN (occurrence: CN)
  Receive Date: 20190722
  Receipt Date: 20190730
  Transmission Date: 20191004
  Serious: Yes (Other)
  Sender: FDA-Public Use
  Company Number: CN-ASTRAZENECA-2019SF04875

PATIENT
  Age: 47 Year

DRUGS (2)
  1. TAGRISSO [Suspect]
     Active Substance: OSIMERTINIB
     Indication: METASTASES TO CENTRAL NERVOUS SYSTEM
     Route: 048
     Dates: end: 201907
  2. BETALOC [Concomitant]
     Active Substance: METOPROLOL TARTRATE

REACTIONS (2)
  - Haemoptysis [Recovering/Resolving]
  - Haemorrhagic disorder [Unknown]
